FAERS Safety Report 26052134 (Version 1)
Quarter: 2025Q4

REPORT INFORMATION
  Report Type: Spontaneous
  Country: US (occurrence: US)
  Receive Date: 20251117
  Receipt Date: 20251117
  Transmission Date: 20260119
  Serious: Yes (Hospitalization)
  Sender: Medicap Laboratories
  Company Number: US-Medicap-000099

PATIENT
  Sex: Male

DRUGS (1)
  1. QUETIAPINE [Suspect]
     Active Substance: QUETIAPINE
     Indication: Hallucination, auditory
     Route: 065

REACTIONS (6)
  - Condition aggravated [Recovered/Resolved]
  - Hallucination, auditory [Recovered/Resolved]
  - Drug ineffective [Unknown]
  - Delusion [Recovered/Resolved]
  - Exploding head syndrome [Recovered/Resolved]
  - Suicidal ideation [Recovered/Resolved]
